FAERS Safety Report 21880946 (Version 2)
Quarter: 2023Q1

REPORT INFORMATION
  Report Type: Spontaneous
  Country: None (occurrence: US)
  Receive Date: 20230118
  Receipt Date: 20230126
  Transmission Date: 20230418
  Serious: Yes (Other)
  Sender: FDA-Public Use
  Company Number: US-Leiters-2136862

PATIENT
  Age: 54 Year
  Sex: Female
  Weight: 90.909 kg

DRUGS (1)
  1. BEVACIZUMAB [Suspect]
     Active Substance: BEVACIZUMAB
     Indication: Diabetic retinal oedema
     Route: 047
     Dates: start: 20221214, end: 20221214

REACTIONS (1)
  - Bacterial endophthalmitis [Recovered/Resolved]
